FAERS Safety Report 4771435-2 (Version None)
Quarter: 2005Q3

REPORT INFORMATION
  Report Type: 
  Country: None (occurrence: None)
  Receive Date: 20050914
  Receipt Date: 20050904
  Transmission Date: 20060218
  Serious: Yes (Other)
  Sender: FDA-Public Use
  Company Number: 2005124534

PATIENT
  Sex: Male

DRUGS (2)
  1. LIPITOR [Suspect]
     Indication: ILL-DEFINED DISORDER
  2. STATINS (HMG COA REDUCTASE INHIBITORS) [Suspect]
     Indication: ILL-DEFINED DISORDER

REACTIONS (4)
  - DIABETES MELLITUS [None]
  - MUSCLE SPASMS [None]
  - MYALGIA [None]
  - MYOCARDIAL INFARCTION [None]
